FAERS Safety Report 25739060 (Version 1)
Quarter: 2025Q3

REPORT INFORMATION
  Report Type: Spontaneous
  Country: US (occurrence: US)
  Receive Date: 20250829
  Receipt Date: 20250829
  Transmission Date: 20251021
  Serious: No
  Sender: MDD OPERATIONS
  Company Number: US-MDD US Operations-MDD202507-002754

PATIENT
  Age: 78 Year
  Sex: Female

DRUGS (1)
  1. ONAPGO [Suspect]
     Active Substance: APOMORPHINE HYDROCHLORIDE
     Indication: Parkinson^s disease
     Dosage: CONTINUOUS FOR 16 HOURS
     Route: 058

REACTIONS (3)
  - Hyperhidrosis [Recovered/Resolved]
  - Somnolence [Unknown]
  - Adverse event [Unknown]

NARRATIVE: CASE EVENT DATE: 20250701
